FAERS Safety Report 21335127 (Version 1)
Quarter: 2022Q3

REPORT INFORMATION
  Report Type: Spontaneous
  Country: AR (occurrence: AR)
  Receive Date: 20220914
  Receipt Date: 20220914
  Transmission Date: 20221026
  Serious: Yes (Other)
  Sender: FDA-Public Use
  Company Number: AR-PFIZER INC-202200788740

PATIENT
  Age: 62 Year
  Sex: Female

DRUGS (2)
  1. ENBREL [Suspect]
     Active Substance: ETANERCEPT
     Indication: Rheumatoid arthritis
     Dosage: 50 MG, 2X/WEEK
     Route: 065
     Dates: start: 20111003
  2. ENBREL [Suspect]
     Active Substance: ETANERCEPT
     Dosage: 50 MG (EVERY 15 DAYS)
     Route: 065

REACTIONS (5)
  - Angina pectoris [Unknown]
  - Off label use [Unknown]
  - Product dose omission issue [Unknown]
  - Pyrexia [Not Recovered/Not Resolved]
  - Nasopharyngitis [Not Recovered/Not Resolved]

NARRATIVE: CASE EVENT DATE: 20111003
